FAERS Safety Report 20649147 (Version 16)
Quarter: 2023Q2

REPORT INFORMATION
  Report Type: Report from Study
  Country: US (occurrence: None)
  Receive Date: 20220329
  Receipt Date: 20230523
  Transmission Date: 20230722
  Serious: Yes (Life-Threatening, Hospitalization)
  Sender: FDA-Public Use
  Company Number: US-ROCHE-3054743

PATIENT
  Age: 62 Year
  Sex: Female
  Weight: 63.5 kg

DRUGS (2)
  1. ATEZOLIZUMAB [Suspect]
     Active Substance: ATEZOLIZUMAB
     Indication: Non-small cell lung cancer metastatic
     Dosage: MOST RECENT DOSE ON 02/FEB/2022.
     Route: 041
     Dates: start: 20211220, end: 20220418
  2. EFINEPTAKIN ALFA [Suspect]
     Active Substance: EFINEPTAKIN ALFA
     Indication: Non-small cell lung cancer metastatic
     Route: 030
     Dates: start: 20211220, end: 20220328

REACTIONS (4)
  - Chest pain [Recovered/Resolved]
  - Hyperglycaemia [Recovered/Resolved]
  - Vomiting [Not Recovered/Not Resolved]
  - Diabetic ketoacidosis [Recovered/Resolved]

NARRATIVE: CASE EVENT DATE: 20211229
